FAERS Safety Report 4458124-9 (Version None)
Quarter: 2004Q3

REPORT INFORMATION
  Report Type: 
  Country: None (occurrence: None)
  Receive Date: 20040924
  Receipt Date: 20040922
  Transmission Date: 20050211
  Serious: Yes (Hospitalization)
  Sender: FDA-Public Use
  Company Number: US-GLAXOSMITHKLINE-A0526887A

PATIENT
  Sex: Male

DRUGS (7)
  1. LAMICTAL [Suspect]
     Indication: BIPOLAR DISORDER
     Route: 048
     Dates: start: 20040911, end: 20040914
  2. HUMALOG [Concomitant]
  3. ALEVE [Concomitant]
  4. TADALAFIL [Concomitant]
  5. LANTUS [Concomitant]
  6. AMBIEN [Concomitant]
  7. PROZAC [Concomitant]

REACTIONS (7)
  - HEADACHE [None]
  - MENINGITIS VIRAL [None]
  - NAUSEA [None]
  - PYREXIA [None]
  - RASH [None]
  - VOMITING [None]
  - WHITE BLOOD CELL COUNT DECREASED [None]
